FAERS Safety Report 8182649-6 (Version None)
Quarter: 2012Q1

REPORT INFORMATION
  Report Type: 
  Country: None (occurrence: None)
  Receive Date: 20120305
  Receipt Date: 20120301
  Transmission Date: 20120608
  Serious: No
  Sender: FDA-Public Use
  Company Number: US-PFIZER INC-2012056672

PATIENT
  Sex: Female

DRUGS (3)
  1. VIOXX [Suspect]
     Dosage: UNK
  2. ZOLOFT [Suspect]
     Dosage: UNK
  3. DEMEROL [Suspect]
     Dosage: UNK

REACTIONS (3)
  - NAUSEA [None]
  - SWELLING [None]
  - URTICARIA [None]
